FAERS Safety Report 18295505 (Version 2)
Quarter: 2020Q3

REPORT INFORMATION
  Report Type: Spontaneous
  Country: US (occurrence: US)
  Receive Date: 20200922
  Receipt Date: 20200924
  Transmission Date: 20201103
  Serious: Yes (Hospitalization, Other)
  Sender: FDA-Public Use
  Company Number: US-BAYER-2020-203406

PATIENT
  Age: 35 Year
  Sex: Female

DRUGS (1)
  1. KYLEENA [Suspect]
     Active Substance: LEVONORGESTREL
     Indication: CONTRACEPTION
     Dosage: 17.5 ?G PER DAY CONTINUOUSLY
     Route: 015
     Dates: start: 20180424

REACTIONS (4)
  - Drug ineffective [None]
  - Procedural pain [None]
  - Ectopic pregnancy with contraceptive device [Recovered/Resolved]
  - Post procedural haemorrhage [None]

NARRATIVE: CASE EVENT DATE: 20200915
